FAERS Safety Report 4928318-4 (Version None)
Quarter: 2006Q1

REPORT INFORMATION
  Report Type: 
  Country: None (occurrence: None)
  Receive Date: 20060228
  Receipt Date: 20050926
  Transmission Date: 20060701
  Serious: Yes (Death, Hospitalization)
  Sender: FDA-Public Use
  Company Number: US-MERCK-0509USA03864

PATIENT
  Age: 62 Year
  Sex: Female
  Weight: 96 kg

DRUGS (2)
  1. VIOXX [Suspect]
     Indication: INTERVERTEBRAL DISC DEGENERATION
     Route: 048
     Dates: start: 20010601, end: 20011201
  2. VIOXX [Suspect]
     Route: 048
     Dates: start: 20011201, end: 20040401

REACTIONS (2)
  - ACUTE MYOCARDIAL INFARCTION [None]
  - CAROTID ARTERY DISEASE [None]
